FAERS Safety Report 7714781-2 (Version None)
Quarter: 2011Q3

REPORT INFORMATION
  Report Type: 
  Country: None (occurrence: None)
  Receive Date: 20110808
  Receipt Date: 20110616
  Transmission Date: 20111222
  Serious: Yes (Other)
  Sender: FDA-Public Use
  Company Number: M-11-016

PATIENT
  Age: 64 Year
  Sex: Female

DRUGS (3)
  1. DOXYCYCLINE [Suspect]
     Dosage: ORAL (047)
  2. VITAMIN B6 [Concomitant]
  3. VITAMIN B12 SHOTS [Concomitant]

REACTIONS (2)
  - DRUG EFFECT DECREASED [None]
  - PRODUCT SUBSTITUTION ISSUE [None]
